FAERS Safety Report 25655005 (Version 2)
Quarter: 2025Q3

REPORT INFORMATION
  Report Type: Report from Study
  Country: AU (occurrence: AU)
  Receive Date: 20250807
  Receipt Date: 20250811
  Transmission Date: 20251021
  Serious: Yes (Other)
  Sender: NOVARTIS
  Company Number: AU-002147023-NVSC2025AU059262

PATIENT
  Sex: Male

DRUGS (5)
  1. COSENTYX [Suspect]
     Active Substance: SECUKINUMAB
     Indication: Psoriatic arthropathy
     Route: 058
     Dates: start: 20240807
  2. COSENTYX [Suspect]
     Active Substance: SECUKINUMAB
     Dosage: UNK, QMO
     Route: 065
  3. COSENTYX [Suspect]
     Active Substance: SECUKINUMAB
     Dosage: UNK, Q3W
     Route: 065
  4. PREDNISOLONE [Concomitant]
     Active Substance: PREDNISOLONE
     Indication: Product used for unknown indication
     Route: 065
  5. CORTISONE [Concomitant]
     Active Substance: CORTISONE
     Indication: Product used for unknown indication
     Route: 065

REACTIONS (13)
  - Hepatic enzyme increased [Recovered/Resolved]
  - Influenza A virus test positive [Unknown]
  - C-reactive protein increased [Recovered/Resolved]
  - Migraine [Unknown]
  - Enthesopathy [Unknown]
  - Off label use [Unknown]
  - Malaise [Unknown]
  - Pain [Unknown]
  - COVID-19 [Unknown]
  - Ageusia [Unknown]
  - Blood test abnormal [Recovered/Resolved]
  - Oral candidiasis [Unknown]
  - Illness [Unknown]
